FAERS Safety Report 7796599-8 (Version None)
Quarter: 2011Q4

REPORT INFORMATION
  Report Type: 
  Country: None (occurrence: None)
  Receive Date: 20111005
  Receipt Date: 20110926
  Transmission Date: 20120403
  Serious: Yes (Hospitalization)
  Sender: FDA-Public Use
  Company Number: US-ELI_LILLY_AND_COMPANY-US201108006220

PATIENT
  Sex: Female
  Weight: 67.6 kg

DRUGS (3)
  1. ZYPREXA [Suspect]
     Indication: BIPOLAR DISORDER
     Dosage: 2.5 MG, QD
     Dates: start: 20110616
  2. ZYPREXA [Suspect]
     Dosage: UNK, QD
  3. ZYPREXA [Suspect]
     Dosage: UNK, QD

REACTIONS (2)
  - BIPOLAR DISORDER [None]
  - DEMENTIA [None]
